FAERS Safety Report 12079176 (Version 1)
Quarter: 2016Q1

REPORT INFORMATION
  Report Type: Spontaneous
  Country: FI (occurrence: FI)
  Receive Date: 20160216
  Receipt Date: 20160216
  Transmission Date: 20160526
  Serious: Yes (Hospitalization)
  Sender: FDA-Public Use
  Company Number: FI-JNJFOC-20160205788

PATIENT
  Age: 50 Year
  Sex: Male

DRUGS (1)
  1. REMICADE [Suspect]
     Active Substance: INFLIXIMAB
     Indication: COLITIS ULCERATIVE
     Route: 042
     Dates: start: 20150213, end: 20151228

REACTIONS (3)
  - Adverse drug reaction [Not Recovered/Not Resolved]
  - Drug specific antibody present [Unknown]
  - Influenza like illness [Unknown]

NARRATIVE: CASE EVENT DATE: 201512
